FAERS Safety Report 8430756-2 (Version None)
Quarter: 2012Q2

REPORT INFORMATION
  Report Type: 
  Country: None (occurrence: None)
  Receive Date: 20120612
  Receipt Date: 20120531
  Transmission Date: 20120825
  Serious: Yes (Hospitalization, Other)
  Sender: FDA-Public Use
  Company Number: US-ELI_LILLY_AND_COMPANY-US201204007213

PATIENT
  Sex: Female

DRUGS (9)
  1. SINEMET [Concomitant]
     Dosage: UNK, TID
  2. OMEPRAZOLE [Concomitant]
     Dosage: UNK
  3. ZOCOR [Concomitant]
     Dosage: UNK, QD
  4. CALCIUM CARBONATE [Concomitant]
     Dosage: UNK, QD
  5. NAMENDA [Concomitant]
     Dosage: UNK, BID
  6. FORTEO [Suspect]
     Indication: OSTEOPOROSIS
     Dosage: 20 UG, QD
     Route: 065
     Dates: start: 20110701
  7. EXELON [Concomitant]
     Dosage: UNK, QD
  8. LANTUS [Concomitant]
     Dosage: UNK
  9. REQUIP [Concomitant]
     Dosage: UNK

REACTIONS (5)
  - DYSPHAGIA [None]
  - PNEUMONIA ASPIRATION [None]
  - OESOPHAGEAL STENOSIS [None]
  - HYPOTENSION [None]
  - ASTHENIA [None]
